FAERS Safety Report 19983357 (Version 1)
Quarter: 2021Q4

REPORT INFORMATION
  Report Type: Spontaneous
  Country: US (occurrence: US)
  Receive Date: 20211022
  Receipt Date: 20211022
  Transmission Date: 20220303
  Serious: No
  Sender: FDA-Public Use
  Company Number: None

PATIENT

DRUGS (1)
  1. MESALAMINE [Suspect]
     Active Substance: MESALAMINE
     Indication: Crohn^s disease
     Dosage: ?          QUANTITY:2 TABLET(S);
     Route: 048

REACTIONS (4)
  - Pain [None]
  - Product contamination [None]
  - Pseudomonas infection [None]
  - Product substitution issue [None]

NARRATIVE: CASE EVENT DATE: 20170701
